FAERS Safety Report 5775404-5 (Version None)
Quarter: 2008Q2

REPORT INFORMATION
  Report Type: 
  Country: None (occurrence: None)
  Receive Date: 20080612
  Receipt Date: 20080529
  Transmission Date: 20081010
  Serious: Yes (Hospitalization)
  Sender: FDA-Public Use
  Company Number: STI-2008-00372

PATIENT
  Age: 72 Year
  Sex: Female

DRUGS (2)
  1. BETADERM [Suspect]
     Indication: ALOPECIA
     Dosage: (DROP BY DROP ALTERNATE DAYS)   ON SCALP WHERE LESS HAIR
  2. CAPTOPRIL [Concomitant]

REACTIONS (9)
  - ANAEMIA [None]
  - ASTHENIA [None]
  - EAR DISORDER [None]
  - EAR PAIN [None]
  - HEADACHE [None]
  - PHARYNGOLARYNGEAL PAIN [None]
  - PYREXIA [None]
  - SWELLING [None]
  - VASODILATATION [None]
